FAERS Safety Report 25771346 (Version 1)
Quarter: 2025Q3

REPORT INFORMATION
  Report Type: Spontaneous
  Country: CN (occurrence: CN)
  Receive Date: 20250908
  Receipt Date: 20250908
  Transmission Date: 20251021
  Serious: Yes (Other)
  Sender: BAXTER
  Company Number: None

PATIENT
  Age: 54 Year
  Sex: Female
  Weight: 65 kg

DRUGS (5)
  1. CYCLOPHOSPHAMIDE [Suspect]
     Active Substance: CYCLOPHOSPHAMIDE
     Indication: Hormone receptor positive breast cancer
     Dosage: 880 MG, EVERY 3 WK
     Route: 042
     Dates: start: 20250617, end: 20250708
  2. SODIUM CHLORIDE [Suspect]
     Active Substance: SODIUM CHLORIDE
     Dosage: 50 ML, QD (CYCLOPHOSPHAMIDE + NS) (INTRAVENOUS PUSH)
     Route: 042
     Dates: start: 20250617, end: 20250708
  3. SODIUM CHLORIDE [Suspect]
     Active Substance: SODIUM CHLORIDE
     Dosage: 250 ML, QD (DOCETAXEL + NS)
     Route: 041
     Dates: start: 20250617, end: 20250708
  4. DOCETAXEL [Suspect]
     Active Substance: DOCETAXEL
     Indication: Hormone receptor positive breast cancer
     Dosage: 122 MG, EVERY 3 WK
     Route: 041
     Dates: start: 20250617, end: 20250708
  5. RYZNEUTA [Concomitant]
     Active Substance: EFBEMALENOGRASTIM ALFA-VUXW
     Route: 058
     Dates: start: 20250619

REACTIONS (2)
  - Neutrophil count decreased [Recovering/Resolving]
  - White blood cell count decreased [Recovering/Resolving]

NARRATIVE: CASE EVENT DATE: 20250623
